FAERS Safety Report 8906096 (Version 1)
Quarter: 2012Q4

REPORT INFORMATION
  Report Type: 
  Country: US (occurrence: US)
  Receive Date: 20121112
  Receipt Date: 20121112
  Transmission Date: 20130627
  Serious: No
  Sender: FDA-Public Use
  Company Number: US-PFIZER INC-2012280203

PATIENT
  Age: 60 Year
  Sex: Female
  Weight: 77.1 kg

DRUGS (1)
  1. CELEBREX [Suspect]
     Indication: ARTHRITIS
     Dosage: 200 mg, 2x/day
     Route: 048

REACTIONS (1)
  - Pain in extremity [Not Recovered/Not Resolved]
